FAERS Safety Report 4799789-1 (Version None)
Quarter: 2005Q4

REPORT INFORMATION
  Report Type: 
  Country: None (occurrence: None)
  Receive Date: 20051012
  Receipt Date: 20051012
  Transmission Date: 20060501
  Serious: Yes (Other)
  Sender: FDA-Public Use
  Company Number: None

PATIENT
  Age: 56 Year
  Sex: Female
  Weight: 61.2356 kg

DRUGS (1)
  1. FLUCONAZOLE 150 MG SANDOZ [Suspect]
     Indication: FUNGAL INFECTION
     Dosage: 1 TABLET BY MOUTH WEEKLY
     Dates: start: 20050824, end: 20051011

REACTIONS (7)
  - ANXIETY [None]
  - BURNING SENSATION [None]
  - CHEST PAIN [None]
  - DRUG DISPENSING ERROR [None]
  - FEELING ABNORMAL [None]
  - PHARMACEUTICAL PRODUCT COMPLAINT [None]
  - THERAPEUTIC RESPONSE UNEXPECTED WITH DRUG SUBSTITUTION [None]
